FAERS Safety Report 7331428-8 (Version None)
Quarter: 2011Q1

REPORT INFORMATION
  Report Type: 
  Country: None (occurrence: None)
  Receive Date: 20110304
  Receipt Date: 20110223
  Transmission Date: 20110831
  Serious: Yes (Other)
  Sender: FDA-Public Use
  Company Number: BR-PFIZER INC-2011040246

PATIENT
  Age: 53 Year
  Sex: Female

DRUGS (2)
  1. PRISTIQ [Suspect]
     Indication: DEPRESSION
     Dosage: 50 MG, UNK
     Route: 048
     Dates: start: 20110205
  2. SYSTANE [Concomitant]
     Indication: INTRAOCULAR PRESSURE INCREASED

REACTIONS (11)
  - HEAD DISCOMFORT [None]
  - HALLUCINATION [None]
  - DEPRESSION [None]
  - AGGRESSION [None]
  - GAIT DISTURBANCE [None]
  - DYSENTERY [None]
  - JOINT LOCK [None]
  - CRYING [None]
  - NAUSEA [None]
  - INTENTIONAL SELF-INJURY [None]
  - HEADACHE [None]
